FAERS Safety Report 7350985-9 (Version None)
Quarter: 2011Q1

REPORT INFORMATION
  Report Type: 
  Country: None (occurrence: None)
  Receive Date: 20110314
  Receipt Date: 20110309
  Transmission Date: 20110831
  Serious: Yes (Hospitalization, Other)
  Sender: FDA-Public Use
  Company Number: PT-PFIZER INC-2011036002

PATIENT
  Age: 65 Year
  Sex: Female

DRUGS (8)
  1. CHAMPIX [Suspect]
     Indication: SMOKING CESSATION THERAPY
     Dosage: 0.5 MG, 1X/DAY
     Route: 048
     Dates: start: 20100610, end: 20100612
  2. METFORMIN [Concomitant]
     Indication: TYPE 2 DIABETES MELLITUS
  3. DIAMICRON [Concomitant]
     Indication: TYPE 2 DIABETES MELLITUS
  4. ACETYLSALICYLIC ACID [Concomitant]
  5. CHAMPIX [Suspect]
     Dosage: 0.5 MG, 2X/DAY
     Route: 048
     Dates: start: 20100613, end: 20100616
  6. CHAMPIX [Suspect]
     Dosage: 1 MG, 2X/DAY
     Route: 048
     Dates: start: 20100617
  7. SITAGLIPTIN [Concomitant]
     Indication: TYPE 2 DIABETES MELLITUS
  8. EFFEXOR XR [Concomitant]

REACTIONS (5)
  - PNEUMONIA [None]
  - WHITE BLOOD CELLS URINE POSITIVE [None]
  - DIABETES MELLITUS [None]
  - CARDIOGENIC SHOCK [None]
  - METABOLIC ACIDOSIS [None]
